FAERS Safety Report 9815781 (Version 1)
Quarter: 2014Q1

REPORT INFORMATION
  Report Type: Spontaneous
  Country: US (occurrence: None)
  Receive Date: 20140110
  Receipt Date: 20140110
  Transmission Date: 20141002
  Serious: Yes (Hospitalization)
  Sender: FDA-Public Use
  Company Number: 2117510

PATIENT
  Age: 80 Year
  Sex: Female

DRUGS (2)
  1. HYDROMORPHONE HYDROCHLORIDE [Suspect]
     Indication: POST LAMINECTOMY SYNDROME
     Dosage: 40 MILLILITRE(S), UNKNOWN, SUBCUTANEOUS
     Route: 058
  2. GABAPENTIN [Concomitant]

REACTIONS (15)
  - Loss of consciousness [None]
  - Unresponsive to stimuli [None]
  - Unresponsive to stimuli [None]
  - Drug administered at inappropriate site [None]
  - Overdose [None]
  - Dizziness [None]
  - Miosis [None]
  - Respiratory rate decreased [None]
  - Oxygen saturation decreased [None]
  - Blood pressure diastolic decreased [None]
  - Wrong technique in drug usage process [None]
  - Hypopnoea [None]
  - Back pain [None]
  - Anxiety [None]
  - Medication error [None]
